FAERS Safety Report 8254639-6 (Version None)
Quarter: 2012Q2

REPORT INFORMATION
  Report Type: 
  Country: None (occurrence: None)
  Receive Date: 20120403
  Receipt Date: 20120321
  Transmission Date: 20120825
  Serious: Yes (Other)
  Sender: FDA-Public Use
  Company Number: AU-AMGEN-AUSSP2011034011

PATIENT
  Age: 60 Year
  Sex: Male
  Weight: 73 kg

DRUGS (4)
  1. ENBREL [Suspect]
     Indication: ANKYLOSING SPONDYLITIS
  2. ACTONEL [Concomitant]
     Indication: OSTEOPOROSIS
     Dosage: 150 UNK, MONTHLY
     Route: 048
     Dates: start: 20101119
  3. ENBREL [Suspect]
     Indication: PSORIASIS
     Dosage: 50 UNK, QWK
     Route: 058
     Dates: start: 20100804
  4. CELEBREX [Concomitant]
     Indication: ARTHRITIS
     Dosage: 200 UNK, QD
     Route: 048

REACTIONS (4)
  - INSOMNIA [None]
  - PSORIATIC ARTHROPATHY [None]
  - PSORIASIS [None]
  - HEADACHE [None]
